FAERS Safety Report 8875834 (Version 1)
Quarter: 2012Q4

REPORT INFORMATION
  Report Type: 
  Country: US (occurrence: US)
  Receive Date: 20121023
  Receipt Date: 20121023
  Transmission Date: 20130627
  Serious: Yes (Hospitalization, Other)
  Sender: FDA-Public Use
  Company Number: US-009507513-1106USA01933

PATIENT

DRUGS (10)
  1. FOSAMAX [Suspect]
     Indication: OSTEOPOROSIS
     Dosage: 70 mg, QW
     Route: 048
     Dates: start: 200006, end: 200810
  2. FOSAMAX [Suspect]
     Dosage: 70 mg, qd
     Route: 048
     Dates: start: 20071002
  3. FOSAMAX [Suspect]
     Dosage: 70 mg, UNK
     Route: 048
     Dates: start: 20080213, end: 200810
  4. METICORTEN [Suspect]
     Dosage: UNK UNK, PRN
     Route: 048
     Dates: start: 1997
  5. METICORTEN [Suspect]
     Dosage: 7 mg, qd
     Route: 048
  6. MK-9278 [Concomitant]
  7. VITAMIN D (UNSPECIFIED) [Concomitant]
  8. ASCORBIC ACID [Concomitant]
  9. CALCIUM (UNSPECIFIED) [Concomitant]
  10. PREDNISONE [Concomitant]
     Indication: PYODERMA GANGRENOSUM
     Dosage: 15-20

REACTIONS (71)
  - Closed fracture manipulation [Unknown]
  - C-reactive protein increased [Recovering/Resolving]
  - Bundle branch block bilateral [Unknown]
  - Anaemia postoperative [Not Recovered/Not Resolved]
  - Hypoalbuminaemia [Unknown]
  - Cerumen impaction [Recovered/Resolved]
  - Hyperglycaemia [Unknown]
  - Sinusitis [Recovering/Resolving]
  - Thrombocytosis [Unknown]
  - Haemoglobin decreased [Recovered/Resolved]
  - Fall [Unknown]
  - Fall [Unknown]
  - Hypoproteinaemia [Unknown]
  - White blood cell count increased [Not Recovered/Not Resolved]
  - Steroid therapy [Unknown]
  - Staphylococcal infection [Unknown]
  - Pyoderma gangrenosum [Not Recovered/Not Resolved]
  - Mass [Unknown]
  - Gastrointestinal disorder [Unknown]
  - Femur fracture [Unknown]
  - Femur fracture [Unknown]
  - Tooth disorder [Unknown]
  - Overdose [Unknown]
  - Pyoderma [Unknown]
  - Staphylococcal infection [Unknown]
  - Cyst [Unknown]
  - Weight increased [Unknown]
  - Insomnia [Unknown]
  - Irritability [Unknown]
  - Cataract [Unknown]
  - Bone density decreased [Unknown]
  - Increased tendency to bruise [Unknown]
  - Adverse drug reaction [Unknown]
  - Fatigue [Unknown]
  - Asthenia [Unknown]
  - Eye irritation [Unknown]
  - Nocturia [Unknown]
  - Connective tissue disorder [Unknown]
  - Hyperlipidaemia [Unknown]
  - Myopathy [Unknown]
  - Blood glucose increased [Unknown]
  - Leukocytosis [Unknown]
  - Thrombocytosis [Unknown]
  - Upper respiratory tract infection [Unknown]
  - Dyspnoea exertional [Unknown]
  - Plantar fasciitis [Unknown]
  - Foot fracture [Unknown]
  - Tenosynovitis stenosans [Unknown]
  - Carpal tunnel syndrome [Unknown]
  - Varicose vein [Unknown]
  - Hypoaesthesia [Unknown]
  - Osteopenia [Unknown]
  - Road traffic accident [Unknown]
  - Osteoarthritis [Unknown]
  - Ligament rupture [Unknown]
  - Foot fracture [Unknown]
  - Tonsillar disorder [Unknown]
  - Osteoarthritis [Unknown]
  - Colitis ulcerative [Unknown]
  - Pain in extremity [Unknown]
  - Diarrhoea [Unknown]
  - Myalgia [Unknown]
  - Headache [Unknown]
  - Oedema peripheral [Unknown]
  - Muscle spasms [Unknown]
  - Gastrooesophageal reflux disease [Unknown]
  - Limb discomfort [Unknown]
  - Photosensitivity reaction [Unknown]
  - Arthralgia [Unknown]
  - Oedema peripheral [Unknown]
  - Alopecia [Unknown]
